APPROVED DRUG PRODUCT: ZEMURON
Active Ingredient: ROCURONIUM BROMIDE
Strength: 100MG/10ML (10MG/ML) **Federal Register determination that product was not discontinued or withdrawn for safety or effectiveness reasons**
Dosage Form/Route: INJECTABLE;INJECTION
Application: N020214 | Product #003
Applicant: ORGANON USA INC
Approved: Mar 17, 1994 | RLD: Yes | RS: No | Type: DISCN